FAERS Safety Report 4547906-0 (Version None)
Quarter: 2005Q1

REPORT INFORMATION
  Report Type: 
  Country: None (occurrence: None)
  Receive Date: 20050110
  Receipt Date: 20041230
  Transmission Date: 20050727
  Serious: Yes (Hospitalization)
  Sender: FDA-Public Use
  Company Number: US-JNJFOC-20040403775

PATIENT
  Sex: Female
  Weight: 73.94 kg

DRUGS (6)
  1. INFLIXIMAB [Suspect]
     Route: 042
  2. INFLIXIMAB [Suspect]
     Route: 042
  3. INFLIXIMAB [Suspect]
     Route: 042
  4. INFLIXIMAB [Suspect]
     Route: 042
  5. INFLIXIMAB [Suspect]
     Indication: CROHN'S DISEASE
     Route: 042
  6. STEROIDS [Concomitant]
     Indication: CROHN'S DISEASE

REACTIONS (10)
  - ARTHRALGIA [None]
  - ARTHRITIS [None]
  - HEADACHE [None]
  - INFLUENZA LIKE ILLNESS [None]
  - INFUSION RELATED REACTION [None]
  - MUSCLE SPASMS [None]
  - MYALGIA [None]
  - RASH [None]
  - SCAR [None]
  - UTERINE LEIOMYOMA [None]
